FAERS Safety Report 9693807 (Version 2)
Quarter: 2013Q4

REPORT INFORMATION
  Report Type: Spontaneous
  Country: US (occurrence: US)
  Receive Date: 20131118
  Receipt Date: 20131122
  Transmission Date: 20140711
  Serious: Yes (Other)
  Sender: FDA-Public Use
  Company Number: US-MERCK-1311USA005458

PATIENT
  Age: 3 Year
  Sex: Female

DRUGS (1)
  1. SINGULAIR [Suspect]
     Indication: ASTHMA
     Dosage: 1 TAB
     Route: 048

REACTIONS (9)
  - Depressed mood [Unknown]
  - Hallucination, visual [Unknown]
  - Initial insomnia [Unknown]
  - Middle insomnia [Unknown]
  - Mood swings [Unknown]
  - Personality change [Unknown]
  - Psychomotor hyperactivity [Unknown]
  - Screaming [Unknown]
  - Tremor [Unknown]
